FAERS Safety Report 13016306 (Version 1)
Quarter: 2016Q4

REPORT INFORMATION
  Report Type: Spontaneous
  Country: US (occurrence: US)
  Receive Date: 20161212
  Receipt Date: 20161212
  Transmission Date: 20170207
  Serious: Yes (Hospitalization)
  Sender: FDA-Public Use
  Company Number: US-AUROBINDO-AUR-APL-2016-15036

PATIENT
  Age: 36 Year
  Sex: Female

DRUGS (1)
  1. PREDNISONE. [Suspect]
     Active Substance: PREDNISONE
     Indication: IMMUNOSUPPRESSION
     Route: 065

REACTIONS (11)
  - Disease progression [Unknown]
  - Oedema [Unknown]
  - Nausea [Unknown]
  - Skin mass [Unknown]
  - Vomiting [Unknown]
  - Acanthamoeba infection [Unknown]
  - Pyrexia [Unknown]
  - Dyspnoea [Unknown]
  - Abscess [Unknown]
  - Osteomyelitis [Unknown]
  - Arthralgia [Unknown]
